FAERS Safety Report 12865668 (Version 3)
Quarter: 2017Q1

REPORT INFORMATION
  Report Type: Spontaneous
  Country: JP (occurrence: JP)
  Receive Date: 20161020
  Receipt Date: 20170103
  Transmission Date: 20170428
  Serious: Yes (Death, Hospitalization, Other)
  Sender: FDA-Public Use
  Company Number: JP-PFIZER INC-2016484113

PATIENT
  Age: 70 Year
  Sex: Female
  Weight: 37 kg

DRUGS (18)
  1. BFLUID [Concomitant]
     Active Substance: AMINO ACIDS\DEXTROSE\ELECTROLYTES NOS\VITAMINS
     Dosage: UNK
     Dates: start: 20160928, end: 20161003
  2. NEU-UP [Concomitant]
     Active Substance: UNSPECIFIED INGREDIENT
     Dosage: UNK
     Dates: start: 20160928, end: 20161005
  3. CLOSTRIDIUM BUTYRICUM COMBINED DRUG [Concomitant]
     Dosage: UNK
     Dates: start: 20160128, end: 20160923
  4. NALOXONE HYDROCHLORIDE. [Concomitant]
     Active Substance: NALOXONE HYDROCHLORIDE
     Dosage: UNK
     Dates: start: 20161004, end: 20161004
  5. GRANISETRON [Concomitant]
     Active Substance: GRANISETRON
     Dosage: UNK
     Dates: start: 20160923, end: 20160923
  6. METHYCOBAL [Concomitant]
     Active Substance: METHYLCOBALAMIN
     Dosage: UNK
     Dates: start: 20160104, end: 20160923
  7. OXIFAST [Concomitant]
     Active Substance: OXYCODONE
     Dosage: UNK
     Dates: start: 20160928, end: 20161005
  8. CEFEPIME [Concomitant]
     Active Substance: CEFEPIME HYDROCHLORIDE
     Dosage: UNK
     Dates: start: 20160930, end: 20161005
  9. CAMPTO [Suspect]
     Active Substance: IRINOTECAN
     Indication: GASTRIC CANCER
     Dosage: 145 MG, 1X/DAY
     Route: 041
     Dates: start: 20160923, end: 20160923
  10. OXYCONTIN [Concomitant]
     Active Substance: OXYCODONE HYDROCHLORIDE
     Dosage: UNK
     Dates: start: 20160923, end: 20160927
  11. PLATELETS [Concomitant]
     Active Substance: HUMAN PLATELET, ALLOGENIC
     Dosage: UNK
     Dates: start: 20161001, end: 20161002
  12. SOLDEM 1 [Concomitant]
     Active Substance: DEXTROSE\SODIUM CHLORIDE\SODIUM LACTATE
     Dosage: UNK
     Dates: start: 20161004, end: 20161005
  13. DEXART [Concomitant]
     Active Substance: DEXAMETHASONE SODIUM PHOSPHATE
     Dosage: UNK
     Dates: start: 20160923, end: 20160923
  14. LOXOPROFEN SODIUM HYDRATE [Concomitant]
     Active Substance: LOXOPROFEN SODIUM DIHYDRATE
     Dosage: UNK
     Dates: start: 20160826, end: 20160923
  15. NOVAMIN [Concomitant]
     Active Substance: PROCHLORPERAZINE MALEATE
     Dosage: UNK
     Dates: start: 20160928, end: 20161004
  16. EDIROL [Concomitant]
     Active Substance: ELDECALCITOL
     Dosage: UNK
     Dates: start: 20150824, end: 20160923
  17. SENNOSIDE [Concomitant]
     Active Substance: SENNOSIDES
     Dosage: UNK
     Dates: start: 20160826, end: 20160923
  18. OXINORM [Concomitant]
     Active Substance: OXYCODONE HYDROCHLORIDE
     Dosage: UNK
     Dates: start: 20160923

REACTIONS (7)
  - Neutropenia [Fatal]
  - Leukopenia [Fatal]
  - Malaise [Not Recovered/Not Resolved]
  - Thrombocytopenia [Fatal]
  - Renal disorder [Fatal]
  - Haemoglobin decreased [Fatal]
  - Infection [Fatal]

NARRATIVE: CASE EVENT DATE: 20160928
